FAERS Safety Report 20767950 (Version 2)
Quarter: 2022Q2

REPORT INFORMATION
  Report Type: Spontaneous
  Country: US (occurrence: None)
  Receive Date: 20220429
  Receipt Date: 20220610
  Transmission Date: 20220720
  Serious: No
  Sender: FDA-Public Use
  Company Number: 2022A154217

PATIENT
  Age: 21697 Day
  Sex: Male
  Weight: 111.1 kg

DRUGS (1)
  1. BUDESONIDE\FORMOTEROL\GLYCOPYRRONIUM [Suspect]
     Active Substance: BUDESONIDE\FORMOTEROL\GLYCOPYRRONIUM
     Indication: Chronic obstructive pulmonary disease
     Dosage: 60/7.2/5.0UG, 2 PUFFS TWO TIMES A DAY
     Route: 055

REACTIONS (4)
  - Weight increased [Unknown]
  - Device delivery system issue [Unknown]
  - Intentional device misuse [Unknown]
  - Device use issue [Unknown]

NARRATIVE: CASE EVENT DATE: 20220417
